FAERS Safety Report 6488987-7 (Version None)
Quarter: 2009Q4

REPORT INFORMATION
  Report Type: 
  Country: None (occurrence: None)
  Receive Date: 20091207
  Receipt Date: 20091120
  Transmission Date: 20100525
  Serious: Yes (Disabling, Other)
  Sender: FDA-Public Use
  Company Number: US-1166447

PATIENT
  Age: 35 Year
  Sex: Male

DRUGS (5)
  1. NEVANAC [Suspect]
     Indication: PROPHYLAXIS
     Dosage: (Q2H WHILE AWAKE OPHTHALMIC) ; (OU Q 4 H WHILE AWAKE OPHTHALMIC)
     Route: 047
     Dates: start: 20080516, end: 20080519
  2. NEVANAC [Suspect]
     Indication: PROPHYLAXIS
     Dosage: (Q2H WHILE AWAKE OPHTHALMIC) ; (OU Q 4 H WHILE AWAKE OPHTHALMIC)
     Route: 047
     Dates: start: 20080519, end: 20080520
  3. TOBRADEX [Suspect]
     Indication: PROPHYLAXIS
     Dosage: (Q2H WHILE AWAKE OPHTHALMIC)
     Route: 047
     Dates: start: 20080516, end: 20090520
  4. PROPARACAINE HCL [Concomitant]
  5. VIGAMOX [Concomitant]

REACTIONS (7)
  - ACANTHAMOEBA INFECTION [None]
  - CORNEAL SCAR [None]
  - EYE INFECTION FUNGAL [None]
  - PHOTOPHOBIA [None]
  - STAPHYLOCOCCAL INFECTION [None]
  - ULCERATIVE KERATITIS [None]
  - VASCULITIS [None]
